FAERS Safety Report 15119791 (Version 1)
Quarter: 2018Q3

REPORT INFORMATION
  Report Type: Spontaneous
  Country: CZ (occurrence: CZ)
  Receive Date: 20180709
  Receipt Date: 20180709
  Transmission Date: 20181010
  Serious: Yes (Death)
  Sender: FDA-Public Use
  Company Number: CZ-ELI_LILLY_AND_COMPANY-CZ201806010661

PATIENT
  Age: 50 Year
  Sex: Male

DRUGS (5)
  1. ERBITUX [Suspect]
     Active Substance: CETUXIMAB
     Indication: RECTAL CANCER
     Dosage: 1000 MG, CYCLICAL
     Route: 065
     Dates: start: 20150826
  2. OXALIPLATINE [Concomitant]
     Active Substance: OXALIPLATIN
     Indication: PRODUCT USED FOR UNKNOWN INDICATION
     Dosage: UNK UNK, UNKNOWN
     Route: 065
     Dates: start: 20151021
  3. ERBITUX [Suspect]
     Active Substance: CETUXIMAB
     Dosage: 500 MG, CYCLICAL
     Route: 065
     Dates: start: 20150909, end: 20151104
  4. FOLINIC ACID [Concomitant]
     Active Substance: LEUCOVORIN
     Indication: PRODUCT USED FOR UNKNOWN INDICATION
     Dosage: UNK UNK, UNKNOWN
     Route: 065
     Dates: start: 20150826, end: 20151021
  5. FLUOROURACIL. [Concomitant]
     Active Substance: FLUOROURACIL
     Indication: PRODUCT USED FOR UNKNOWN INDICATION
     Dosage: UNK UNK, UNKNOWN
     Route: 065
     Dates: start: 20150826, end: 20151021

REACTIONS (5)
  - Disease progression [Fatal]
  - Hepatic failure [Fatal]
  - Off label use [Unknown]
  - Skin toxicity [Unknown]
  - Stomatitis [Unknown]

NARRATIVE: CASE EVENT DATE: 2015
